FAERS Safety Report 19974581 (Version 1)
Quarter: 2021Q4

REPORT INFORMATION
  Report Type: Spontaneous
  Country: US (occurrence: US)
  Receive Date: 20211020
  Receipt Date: 20211020
  Transmission Date: 20220304
  Serious: No
  Sender: FDA-Public Use
  Company Number: US-AMGEN-USASP2021157448

PATIENT
  Sex: Female

DRUGS (1)
  1. PROLIA [Suspect]
     Active Substance: DENOSUMAB
     Indication: Osteoporosis postmenopausal
     Dosage: 60 MILLIGRAM
     Route: 065

REACTIONS (6)
  - Tooth extraction [Recovered/Resolved]
  - Impaired healing [Unknown]
  - Lymphadenopathy [Unknown]
  - Swelling [Unknown]
  - Bone swelling [Unknown]
  - Infected neoplasm [Unknown]
